FAERS Safety Report 14056165 (Version 1)
Quarter: 2017Q4

REPORT INFORMATION
  Report Type: Spontaneous
  Country: CA (occurrence: CA)
  Receive Date: 20171006
  Receipt Date: 20171006
  Transmission Date: 20180321
  Serious: Yes (Life-Threatening, Hospitalization)
  Sender: FDA-Public Use
  Company Number: CA-MYLANLABS-2017M1059197

PATIENT
  Age: 20 Year
  Sex: Male
  Weight: 66 kg

DRUGS (7)
  1. BLINATUMOMAB [Concomitant]
     Active Substance: BLINATUMOMAB
     Indication: B-CELL LYMPHOMA
     Dosage: UNK
  2. INOTUZUMAB OZOGAMICIN [Suspect]
     Active Substance: INOTUZUMAB OZOGAMICIN
     Dosage: 0.94 MG, CYCLE
     Route: 042
  3. ZYLOPRIM [Suspect]
     Active Substance: ALLOPURINOL
     Indication: PROPHYLAXIS
     Dosage: 300 MG, BID
     Route: 048
  4. PROCYTOX [Suspect]
     Active Substance: CYCLOPHOSPHAMIDE
     Indication: CHEMOTHERAPY
     Dosage: 4 G, UNK
     Route: 042
  5. INOTUZUMAB OZOGAMICIN [Suspect]
     Active Substance: INOTUZUMAB OZOGAMICIN
     Indication: REFRACTORY CANCER
     Dosage: 1.5 MG, CYCLE
     Route: 042
  6. INOTUZUMAB OZOGAMICIN [Suspect]
     Active Substance: INOTUZUMAB OZOGAMICIN
     Indication: ACUTE LEUKAEMIA
     Dosage: 0.94 MG, CYCLE
     Route: 042
  7. NABILONE [Suspect]
     Active Substance: NABILONE
     Indication: PROPHYLAXIS
     Dosage: 3 MG, TID
     Route: 048

REACTIONS (1)
  - Venoocclusive disease [Recovered/Resolved]
